FAERS Safety Report 6638261-0 (Version None)
Quarter: 2010Q1

REPORT INFORMATION
  Report Type: 
  Country: None (occurrence: None)
  Receive Date: 20100312
  Receipt Date: 20100226
  Transmission Date: 20100710
  Serious: Yes (Hospitalization)
  Sender: FDA-Public Use
  Company Number: IMP_04921_2010

PATIENT
  Age: 67 Year
  Sex: Female

DRUGS (8)
  1. BUPROPION HCL [Suspect]
     Indication: MAJOR DEPRESSION
     Dosage: 150 MG QD, 300 MG QD, 150 MG QD
  2. BUPROPION HCL [Suspect]
     Indication: MAJOR DEPRESSION
     Dosage: 150 MG QD, 300 MG QD, 150 MG QD
  3. BUPROPION HCL [Suspect]
     Indication: MAJOR DEPRESSION
     Dosage: 150 MG QD, 300 MG QD, 150 MG QD
  4. MIRTAZAPINE [Concomitant]
  5. OLANZAPINE [Concomitant]
  6. ESTAZOLAM [Concomitant]
  7. VENLAFAXINE HYDROCHLORIDE [Concomitant]
  8. BIPERIDEN HYDROCHLORIDE TAB [Concomitant]

REACTIONS (10)
  - AKATHISIA [None]
  - CHOKING [None]
  - CONDITION AGGRAVATED [None]
  - DIZZINESS [None]
  - FALL [None]
  - MAJOR DEPRESSION [None]
  - MOTOR DYSFUNCTION [None]
  - NO THERAPEUTIC RESPONSE [None]
  - PARKINSON'S DISEASE [None]
  - PSYCHOTIC DISORDER [None]
